FAERS Safety Report 15692648 (Version 2)
Quarter: 2019Q1

REPORT INFORMATION
  Report Type: Report from Study
  Country: NL (occurrence: NL)
  Receive Date: 20181206
  Receipt Date: 20190131
  Transmission Date: 20190417
  Serious: Yes (Hospitalization)
  Sender: FDA-Public Use
  Company Number: NL-AMGEN-NLDSL2018171846

PATIENT
  Age: 76 Year
  Sex: Male

DRUGS (2)
  1. NPLATE [Suspect]
     Active Substance: ROMIPLOSTIM
     Indication: IMMUNE THROMBOCYTOPENIC PURPURA
     Dosage: 500 MUG, QWK
     Route: 058
  2. NPLATE [Suspect]
     Active Substance: ROMIPLOSTIM
     Dosage: UNK
     Route: 058

REACTIONS (2)
  - Chills [Not Recovered/Not Resolved]
  - Dyspnoea [Not Recovered/Not Resolved]

NARRATIVE: CASE EVENT DATE: 20181119
